FAERS Safety Report 10031302 (Version 1)
Quarter: 2014Q1

REPORT INFORMATION
  Report Type: Spontaneous
  Country: ES (occurrence: ES)
  Receive Date: 20140324
  Receipt Date: 20140324
  Transmission Date: 20141002
  Serious: Yes (Other)
  Sender: FDA-Public Use
  Company Number: ES-BRISTOL-MYERS SQUIBB COMPANY-20542163

PATIENT
  Sex: Male

DRUGS (2)
  1. HYDREA CAPS [Suspect]
     Indication: BLOOD DISORDER
     Route: 048
  2. CLOPIDOGREL HYDROGEN SULFATE [Concomitant]

REACTIONS (1)
  - Inguinal hernia [Unknown]
